FAERS Safety Report 5316199-9 (Version None)
Quarter: 2007Q2

REPORT INFORMATION
  Report Type: 
  Country: None (occurrence: None)
  Receive Date: 20070503
  Receipt Date: 20070424
  Transmission Date: 20071010
  Serious: Yes (Hospitalization)
  Sender: FDA-Public Use
  Company Number: DE-PFIZER INC-2007034082

PATIENT
  Age: 45 Year
  Sex: Male

DRUGS (2)
  1. ATORVASTATIN CALCIUM [Suspect]
  2. CLOPIDOGREL [Interacting]

REACTIONS (2)
  - CORONARY ARTERY RESTENOSIS [None]
  - DRUG INTERACTION [None]
